FAERS Safety Report 15366605 (Version 1)
Quarter: 2018Q3

REPORT INFORMATION
  Report Type: Spontaneous
  Country: US (occurrence: US)
  Receive Date: 20180901
  Receipt Date: 20180901
  Transmission Date: 20181010
  Serious: Yes (Other)
  Sender: FDA-Public Use
  Company Number: None

PATIENT
  Age: 37 Year
  Sex: Female
  Weight: 58.5 kg

DRUGS (4)
  1. HERBAL INSANITY THE PERFECT TEA FOR THE TERRIBLE PAIN AND STRESS [Suspect]
     Active Substance: HERBALS
     Indication: PAIN MANAGEMENT
     Dosage: ?          QUANTITY:1 TEASPOON(S);?
     Route: 048
     Dates: start: 20180812, end: 20180813
  2. HERBAL INSANITY^S CBD OIL FOR PAIN [Suspect]
     Active Substance: CANNABIDIOL
     Indication: PAIN IN EXTREMITY
     Dosage: ?          QUANTITY:1 BOTTLE OF OIL;?
     Route: 061
     Dates: start: 20180812, end: 20180831
  3. HERBAL INSANITY^S CBD OIL FOR PAIN [Suspect]
     Active Substance: CANNABIDIOL
     Indication: DYSMENORRHOEA
     Dosage: ?          QUANTITY:1 BOTTLE OF OIL;?
     Route: 061
     Dates: start: 20180812, end: 20180831
  4. HERBAL INSANITY^S CBD OIL FOR PAIN [Suspect]
     Active Substance: CANNABIDIOL
     Indication: HEADACHE
     Dosage: ?          QUANTITY:1 BOTTLE OF OIL;?
     Route: 061
     Dates: start: 20180812, end: 20180831

REACTIONS (2)
  - Inadequate analgesia [None]
  - Application site rash [None]

NARRATIVE: CASE EVENT DATE: 20180812
